FAERS Safety Report 21578461 (Version 1)
Quarter: 2022Q4

REPORT INFORMATION
  Report Type: Spontaneous
  Country: US (occurrence: US)
  Receive Date: 20221110
  Receipt Date: 20221110
  Transmission Date: 20230113
  Serious: Yes (Hospitalization)
  Sender: FDA-Public Use
  Company Number: US-TEVA-2022-US-2823542

PATIENT
  Age: 60 Year
  Sex: Male

DRUGS (1)
  1. METHOTREXATE [Suspect]
     Active Substance: METHOTREXATE
     Indication: Product used for unknown indication
     Dosage: 15 MILLIGRAM DAILY;
     Route: 065

REACTIONS (6)
  - Stomatitis [Recovering/Resolving]
  - Skin lesion [Recovering/Resolving]
  - Skin ulcer [Recovering/Resolving]
  - Swollen tongue [Recovering/Resolving]
  - Toxicity to various agents [Recovering/Resolving]
  - Incorrect dose administered [Unknown]
